FAERS Safety Report 9968635 (Version 1)
Quarter: 2014Q1

REPORT INFORMATION
  Report Type: Spontaneous
  Country: US (occurrence: US)
  Receive Date: 20140306
  Receipt Date: 20140306
  Transmission Date: 20141002
  Serious: No
  Sender: FDA-Public Use
  Company Number: US-ABBVIE-13P-163-1140644-00

PATIENT
  Age: 46 Year
  Sex: Female
  Weight: 61.74 kg

DRUGS (5)
  1. HUMIRA (ABBOTT) [Suspect]
     Indication: CROHN^S DISEASE
     Dates: start: 2011
  2. IMURAN [Concomitant]
     Indication: CROHN^S DISEASE
  3. B 12 [Concomitant]
     Indication: CROHN^S DISEASE
  4. IRON [Concomitant]
     Indication: ANAEMIA
  5. HYDROCORTISONE [Concomitant]
     Indication: CROHN^S DISEASE
     Route: 054

REACTIONS (3)
  - Incorrect route of drug administration [Recovered/Resolved]
  - Wrong technique in drug usage process [Recovered/Resolved]
  - Incorrect dose administered [Unknown]
